FAERS Safety Report 6824229-8 (Version None)
Quarter: 2010Q3

REPORT INFORMATION
  Report Type: 
  Country: None (occurrence: None)
  Receive Date: 20100708
  Receipt Date: 20061009
  Transmission Date: 20110219
  Serious: No
  Sender: FDA-Public Use
  Company Number: US-PFIZER INC-2006125973

PATIENT
  Sex: Female
  Weight: 61.23 kg

DRUGS (3)
  1. CHANTIX [Suspect]
     Indication: SMOKING CESSATION THERAPY
     Dates: start: 20060901
  2. LOTREL [Concomitant]
     Indication: HYPERTENSION
  3. VITAMINS [Concomitant]

REACTIONS (4)
  - MIDDLE INSOMNIA [None]
  - NAUSEA [None]
  - SLEEP DISORDER [None]
  - SOMNOLENCE [None]
